FAERS Safety Report 20605751 (Version 1)
Quarter: 2022Q1

REPORT INFORMATION
  Report Type: Spontaneous
  Country: US (occurrence: US)
  Receive Date: 20220317
  Receipt Date: 20220317
  Transmission Date: 20220423
  Serious: No
  Sender: FDA-Public Use
  Company Number: US-drreddys-SPO/USA/22/0147621

PATIENT
  Age: 47 Year
  Sex: Female

DRUGS (2)
  1. GEMCITABINE [Suspect]
     Active Substance: GEMCITABINE
     Indication: Uterine leiomyosarcoma
  2. DOCETAXEL [Suspect]
     Active Substance: DOCETAXEL
     Indication: Uterine leiomyosarcoma

REACTIONS (2)
  - Paraesthesia [Recovered/Resolved]
  - Orthostatic hypotension [Recovered/Resolved]
